FAERS Safety Report 22288356 (Version 1)
Quarter: 2023Q2

REPORT INFORMATION
  Report Type: Spontaneous
  Country: US (occurrence: None)
  Receive Date: 20230504
  Receipt Date: 20230504
  Transmission Date: 20230722
  Serious: No
  Sender: FDA-Public Use
  Company Number: None

PATIENT
  Age: 75 Year
  Sex: Male
  Weight: 72.48 kg

DRUGS (6)
  1. CAPECITABINE [Suspect]
     Active Substance: CAPECITABINE
     Indication: Pancreatic carcinoma
     Dosage: FREQUENCY : TWICE A DAY;?
     Route: 048
  2. GLIPIZIDE [Concomitant]
     Active Substance: GLIPIZIDE
  3. METFORMIN [Concomitant]
  4. VITAMINS [Concomitant]
     Active Substance: VITAMINS
  5. SIMVASTATIN [Concomitant]
  6. STOOL SOFTNER [Concomitant]

REACTIONS (3)
  - Malignant neoplasm progression [None]
  - Pancreatic carcinoma [None]
  - Therapy cessation [None]
